FAERS Safety Report 11103256 (Version 1)
Quarter: 2015Q2

REPORT INFORMATION
  Report Type: Spontaneous
  Country: US (occurrence: US)
  Receive Date: 20150511
  Receipt Date: 20150511
  Transmission Date: 20150821
  Serious: No
  Sender: FDA-Public Use
  Company Number: US-ELI_LILLY_AND_COMPANY-US201505002931

PATIENT
  Sex: Male

DRUGS (9)
  1. FISH OIL [Concomitant]
     Active Substance: FISH OIL
  2. TOPROL XL [Concomitant]
     Active Substance: METOPROLOL SUCCINATE
  3. KLONOPIN [Concomitant]
     Active Substance: CLONAZEPAM
  4. FOSAMAX [Concomitant]
     Active Substance: ALENDRONATE SODIUM
  5. PROZAC [Suspect]
     Active Substance: FLUOXETINE HYDROCHLORIDE
     Indication: ANTIDEPRESSANT THERAPY
  6. LISINOPRIL. [Concomitant]
     Active Substance: LISINOPRIL
  7. ASA [Concomitant]
     Active Substance: ASPIRIN
  8. WELLBUTRIN [Concomitant]
     Active Substance: BUPROPION HYDROCHLORIDE
  9. SIMVASTATIN. [Concomitant]
     Active Substance: SIMVASTATIN

REACTIONS (1)
  - Cardiac disorder [Unknown]
